FAERS Safety Report 18539945 (Version 1)
Quarter: 2020Q4

REPORT INFORMATION
  Report Type: Spontaneous
  Country: CN (occurrence: CN)
  Receive Date: 20201124
  Receipt Date: 20201124
  Transmission Date: 20210114
  Serious: Yes (Other)
  Sender: FDA-Public Use
  Company Number: CN-PFIZER INC-2020461640

PATIENT
  Age: 75 Year
  Sex: Female
  Weight: 46 kg

DRUGS (1)
  1. DIFLUCAN [Suspect]
     Active Substance: FLUCONAZOLE
     Indication: FUNGAL INFECTION
     Dosage: 100 ML, 1X/DAY
     Route: 041
     Dates: start: 20201015, end: 20201020

REACTIONS (6)
  - Asthma [Recovering/Resolving]
  - Cough [Recovering/Resolving]
  - Brain natriuretic peptide increased [Recovering/Resolving]
  - Chest discomfort [Recovering/Resolving]
  - Cardiac failure chronic [Recovering/Resolving]
  - Rales [Recovering/Resolving]

NARRATIVE: CASE EVENT DATE: 20201020
